FAERS Safety Report 9218717 (Version 3)
Quarter: 2013Q3

REPORT INFORMATION
  Report Type: Spontaneous
  Country: US (occurrence: US)
  Receive Date: 20130409
  Receipt Date: 20130708
  Transmission Date: 20140515
  Serious: Yes (Hospitalization, Other)
  Sender: FDA-Public Use
  Company Number: US-BAYER-2013-044335

PATIENT
  Age: 65 Year
  Sex: Female
  Weight: 79.37 kg

DRUGS (19)
  1. BETASERON [Suspect]
     Indication: MULTIPLE SCLEROSIS
     Dosage: 0.25 MG, QOD
     Route: 058
     Dates: start: 201012
  2. EFFEXOR [Concomitant]
     Dosage: 25 MG, UNK
  3. LASIX [Concomitant]
     Dosage: 20 MG, UNK
  4. MELOXICAM [Concomitant]
     Dosage: 7.5 MG, UNK
  5. NORVASC [Concomitant]
     Dosage: 5 MG, UNK
  6. LIPITOR [Concomitant]
     Dosage: 10 MG, UNK
  7. LOPID [Concomitant]
     Dosage: 600 MG, UNK
  8. SYNTHROID [Concomitant]
     Dosage: 25 ?G, UNK
  9. GABAPENTIN [Concomitant]
     Dosage: 100 MG, UNK
  10. METFORMIN [Concomitant]
     Dosage: 500 MG, UNK
  11. TENORMIN [Concomitant]
     Dosage: 25 MG, UNK
  12. PLAVIX [Concomitant]
     Dosage: 75 MG, UNK
  13. ZANTAC [Concomitant]
     Dosage: 75 MG, UNK
  14. ZETIA [Concomitant]
     Dosage: 10 MG, UNK
  15. CALCIUM +VIT D [Concomitant]
  16. ASPIRIN [Concomitant]
     Dosage: 81 MG, UNK
  17. FERROUS SULFATE [Concomitant]
  18. POTASSIUM CHLORIDE [Concomitant]
     Dosage: 10 MEQ, UNK
  19. ACTHAR [Concomitant]
     Dosage: 80 U, UNK

REACTIONS (7)
  - Multiple sclerosis relapse [Unknown]
  - Drug ineffective [None]
  - Urinary tract infection [Unknown]
  - Sepsis [Unknown]
  - Myocardial infarction [Unknown]
  - Balance disorder [Unknown]
  - Cough [Unknown]
